FAERS Safety Report 8172110-7 (Version None)
Quarter: 2012Q1

REPORT INFORMATION
  Report Type: 
  Country: None (occurrence: None)
  Receive Date: 20120228
  Receipt Date: 20120217
  Transmission Date: 20120608
  Serious: Yes (Other)
  Sender: FDA-Public Use
  Company Number: GB-ELI_LILLY_AND_COMPANY-GB201201006013

PATIENT
  Sex: Male

DRUGS (3)
  1. BYETTA [Suspect]
     Dosage: 10 UG, UNK
  2. BYETTA [Suspect]
     Dosage: 5 UG, UNK
  3. BYETTA [Suspect]
     Dosage: 5 UG, UNK
     Dates: start: 20110101

REACTIONS (3)
  - JAUNDICE [None]
  - DRUG INTOLERANCE [None]
  - CHOLELITHIASIS [None]
